FAERS Safety Report 11169274 (Version 1)
Quarter: 2015Q2

REPORT INFORMATION
  Report Type: Spontaneous
  Country: FI (occurrence: FI)
  Receive Date: 20150605
  Receipt Date: 20150605
  Transmission Date: 20150821
  Serious: Yes (Death, Other)
  Sender: FDA-Public Use
  Company Number: FI-INCYTE CORPORATION-2015IN002418

PATIENT
  Sex: Male

DRUGS (1)
  1. JAKAFI [Suspect]
     Active Substance: RUXOLITINIB
     Indication: MYELOFIBROSIS
     Dosage: UNKNOWN
     Route: 065

REACTIONS (2)
  - Gastrointestinal haemorrhage [Unknown]
  - Pneumonia [Fatal]
